FAERS Safety Report 8826579 (Version 1)
Quarter: 2012Q4

REPORT INFORMATION
  Report Type: 
  Country: US (occurrence: US)
  Receive Date: 20121005
  Receipt Date: 20121005
  Transmission Date: 20130627
  Serious: Yes (Hospitalization)
  Sender: FDA-Public Use
  Company Number: US-TEVA-362538USA

PATIENT
  Age: 50 Year
  Sex: Male

DRUGS (2)
  1. DESMOPRESSIN [Suspect]
     Indication: HYPOPITUITARISM
     Dosage: 0.1 mg/day
     Route: 065
  2. DESMOPRESSIN [Suspect]
     Dosage: 0.05 mg/day

REACTIONS (1)
  - Prinzmetal angina [Recovered/Resolved]
